FAERS Safety Report 24978871 (Version 1)
Quarter: 2025Q1

REPORT INFORMATION
  Report Type: Spontaneous
  Country: US (occurrence: US)
  Receive Date: 20250218
  Receipt Date: 20250218
  Transmission Date: 20250409
  Serious: Yes (Other)
  Sender: BIOGEN
  Company Number: US-BIOGEN-2025BI01300834

PATIENT

DRUGS (1)
  1. TYSABRI [Suspect]
     Active Substance: NATALIZUMAB
     Indication: Multiple sclerosis
     Route: 050

REACTIONS (11)
  - Diabetes mellitus [Unknown]
  - Migraine [Unknown]
  - Thyroid disorder [Unknown]
  - Irritable bowel syndrome [Unknown]
  - Blood pressure abnormal [Unknown]
  - Blood cholesterol increased [Unknown]
  - Gastrooesophageal reflux disease [Unknown]
  - Dry eye [Unknown]
  - Mucosal dryness [Unknown]
  - Teeth brittle [Unknown]
  - Weight decreased [Unknown]
